FAERS Safety Report 5527540-6 (Version None)
Quarter: 2007Q4

REPORT INFORMATION
  Report Type: 
  Country: None (occurrence: None)
  Receive Date: 20071121
  Receipt Date: 20071114
  Transmission Date: 20080405
  Serious: Yes (Other)
  Sender: FDA-Public Use
  Company Number: 2007SP023081

PATIENT
  Age: 10 Year
  Sex: Female

DRUGS (1)
  1. CHILDREN'S CLARITIN GRAPE FLAVORED CHEWABLE (5 GM) [Suspect]
     Indication: DRUG USE FOR UNKNOWN INDICATION
     Dosage: PO
     Route: 048

REACTIONS (1)
  - CONVULSION [None]
